FAERS Safety Report 6025450-1 (Version None)
Quarter: 2008Q4

REPORT INFORMATION
  Report Type: 
  Country: None (occurrence: None)
  Receive Date: 20081231
  Receipt Date: 20081224
  Transmission Date: 20090506
  Serious: Yes (Other)
  Sender: FDA-Public Use
  Company Number: US-JNJFOC-20060906213

PATIENT
  Sex: Female
  Weight: 65.77 kg

DRUGS (2)
  1. RISPERDAL [Suspect]
     Indication: PSYCHOTIC DISORDER
  2. RISPERDAL [Suspect]
     Indication: BIPOLAR DISORDER
     Dosage: 1-2 MG

REACTIONS (1)
  - TYPE 2 DIABETES MELLITUS [None]
